FAERS Safety Report 26020738 (Version 1)
Quarter: 2025Q4

REPORT INFORMATION
  Report Type: Spontaneous
  Country: US (occurrence: None)
  Receive Date: 20251110
  Receipt Date: 20251110
  Transmission Date: 20260118
  Serious: Yes (Disabling)
  Sender: FDA-CTU
  Company Number: None

PATIENT
  Age: 64 Year
  Sex: Male
  Weight: 123.75 kg

DRUGS (1)
  1. GADOLINIUM [Suspect]
     Active Substance: GADOLINIUM

REACTIONS (3)
  - Gadolinium deposition disease [None]
  - Poisoning [None]
  - Fear of death [None]

NARRATIVE: CASE EVENT DATE: 20251107
